FAERS Safety Report 18291114 (Version 1)
Quarter: 2020Q3

REPORT INFORMATION
  Report Type: Spontaneous
  Country: DE (occurrence: DE)
  Receive Date: 20200921
  Receipt Date: 20200921
  Transmission Date: 20201103
  Serious: Yes (Hospitalization)
  Sender: FDA-Public Use
  Company Number: DE-PFIZER INC-2020359096

PATIENT
  Age: 82 Year
  Sex: Male

DRUGS (12)
  1. NALOXONE HYDROCHLORIDE/TILIDINE HYDROCHLORIDE [Suspect]
     Active Substance: NALOXONE HYDROCHLORIDE\TILIDINE HYDROCHLORIDE
     Dosage: 8, 100 MG (1?0?1?0)
  2. TORASEMIDE [Suspect]
     Active Substance: TORSEMIDE
     Dosage: 10 MG (1?1?0?0)
  3. TOUJEO [Concomitant]
     Active Substance: INSULIN GLARGINE
     Dosage: 50 IU (0?0?0?1, SOLOSTAR 1.5 ML PEN)
     Route: 058
  4. METAMIZOLE [Concomitant]
     Active Substance: METAMIZOLE
     Dosage: 500 MG, 1X/DAY (1?0?0?0)
  5. RAMIPRIL. [Concomitant]
     Active Substance: RAMIPRIL
     Dosage: 2.5 MG, 1X/DAY (0?0?2.5?0)
  6. PANTOPRAZOL [PANTOPRAZOLE] [Concomitant]
     Active Substance: PANTOPRAZOLE
     Dosage: 20 MG (1?0?0?0)
  7. PREGABALIN. [Suspect]
     Active Substance: PREGABALIN
     Dosage: 25 MG, 1X/DAY (0?0?0?1)
  8. HYLO?VISION [Concomitant]
     Active Substance: HYALURONATE SODIUM
     Dosage: UNK (1?1?1?0)
     Route: 047
  9. SPIRONOLACTONE. [Suspect]
     Active Substance: SPIRONOLACTONE
     Dosage: 50 MG, 1X/DAY (1?0?0?0)
  10. TAMSULOSIN [Concomitant]
     Active Substance: TAMSULOSIN
     Dosage: 0.4 MG (1?0?0?0)
  11. SIMVASTATIN. [Concomitant]
     Active Substance: SIMVASTATIN
     Dosage: 40 MG (0?0?0.5?0)
  12. ASPIRIN. [Concomitant]
     Active Substance: ASPIRIN
     Dosage: 100 MG (0?1?0?0)

REACTIONS (3)
  - Dizziness [Unknown]
  - General physical health deterioration [Unknown]
  - Hyperglycaemia [Unknown]

NARRATIVE: CASE EVENT DATE: 20200707
